FAERS Safety Report 15409126 (Version 2)
Quarter: 2019Q3

REPORT INFORMATION
  Report Type: Report from Study
  Country: US (occurrence: US)
  Receive Date: 20180920
  Receipt Date: 20190701
  Transmission Date: 20191004
  Serious: Yes (Other)
  Sender: FDA-Public Use
  Company Number: PHEH2018US038073

PATIENT
  Sex: Male

DRUGS (3)
  1. ENTRESTO [Suspect]
     Active Substance: SACUBITRIL\VALSARTAN
     Dosage: UNK (49 MG SACUBITRIL AND 51 MG VALSARTAN)
     Route: 048
  2. ENTRESTO [Suspect]
     Active Substance: SACUBITRIL\VALSARTAN
     Indication: CARDIAC FAILURE
     Dosage: UNK (24 MG SACUBITRIL AND 26 MG VALSARTAN)
     Route: 048
  3. ENTRESTO [Suspect]
     Active Substance: SACUBITRIL\VALSARTAN
     Dosage: UNK (97 MG SACUBITRIL AND 103 MG VALSARTAN)
     Route: 048

REACTIONS (6)
  - Feeling abnormal [Unknown]
  - Fatigue [Unknown]
  - Weight loss poor [Unknown]
  - Blood pressure abnormal [Unknown]
  - Cough [Unknown]
  - Haemorrhage [Not Recovered/Not Resolved]
